FAERS Safety Report 26144805 (Version 1)
Quarter: 2025Q4

REPORT INFORMATION
  Report Type: Spontaneous
  Country: US (occurrence: None)
  Receive Date: 20251210
  Receipt Date: 20251210
  Transmission Date: 20260118
  Serious: Yes (Hospitalization)
  Sender: FDA-CTU
  Company Number: None

PATIENT
  Age: 78 Year
  Sex: Male

DRUGS (16)
  1. TEZSPIRE [Suspect]
     Active Substance: TEZEPELUMAB-EKKO
     Indication: Asthma
     Dosage: OTHER QUANTITY : 210MG OR 1.91ML;?FREQUENCY : MONTHLY;
     Route: 058
     Dates: start: 20240914
  2. ALBUTEROL [Concomitant]
     Active Substance: ALBUTEROL
  3. AMOXICILLIN\CLAVULANIC ACID [Concomitant]
     Active Substance: AMOXICILLIN\CLAVULANIC ACID
  4. POTASSIUM CHLORIDE [Concomitant]
     Active Substance: POTASSIUM CHLORIDE
  5. FUROSEMIDE [Concomitant]
     Active Substance: FUROSEMIDE
  6. FUROSEMIDE [Concomitant]
     Active Substance: FUROSEMIDE
  7. CEFDINIR [Concomitant]
     Active Substance: CEFDINIR
  8. TIZANIDINE [Concomitant]
     Active Substance: TIZANIDINE
  9. OXYBUTYNIN [Concomitant]
     Active Substance: OXYBUTYNIN
  10. FLUTICASONE [Concomitant]
     Active Substance: FLUTICASONE
  11. FLUOROURACIL [Concomitant]
     Active Substance: FLUOROURACIL
  12. MAGNESIUM [Concomitant]
     Active Substance: MAGNESIUM
  13. MULTIVITAMIN ADULT 50+ [Concomitant]
  14. PROBIOTICS NOS [Concomitant]
     Active Substance: PROBIOTICS NOS
  15. AZELASTINE [Concomitant]
     Active Substance: AZELASTINE
  16. DUPIXENT [Concomitant]
     Active Substance: DUPILUMAB

REACTIONS (2)
  - Pulmonary oedema [None]
  - Lung neoplasm malignant [None]

NARRATIVE: CASE EVENT DATE: 20251130
